FAERS Safety Report 8959721 (Version 3)
Quarter: 2014Q3

REPORT INFORMATION
  Report Type: Spontaneous
  Country: US (occurrence: US)
  Receive Date: 20121212
  Receipt Date: 20140731
  Transmission Date: 20150326
  Serious: Yes (Hospitalization)
  Sender: FDA-Public Use
  Company Number: US-ASTRAZENECA-2012SE79925

PATIENT
  Age: 66 Year
  Sex: Female

DRUGS (4)
  1. NEXIUM [Suspect]
     Active Substance: ESOMEPRAZOLE MAGNESIUM
     Route: 048
  2. PRILOSEC [Suspect]
     Active Substance: OMEPRAZOLE MAGNESIUM
     Route: 048
  3. PRILOSEC [Suspect]
     Active Substance: OMEPRAZOLE MAGNESIUM
     Dosage: TWO DOSES DAILY
     Route: 048
  4. SYMBICORT [Suspect]
     Active Substance: BUDESONIDE\FORMOTEROL FUMARATE DIHYDRATE
     Dosage: 160/4.5MCG UNKNOWN
     Route: 055

REACTIONS (9)
  - Dizziness [Unknown]
  - Diarrhoea [Unknown]
  - Respiratory tract infection viral [Unknown]
  - Dyspepsia [Unknown]
  - Productive cough [Unknown]
  - Drug ineffective [Unknown]
  - Adverse event [Unknown]
  - Viral infection [Unknown]
  - Drug dose omission [Unknown]
